FAERS Safety Report 16186275 (Version 1)
Quarter: 2019Q2

REPORT INFORMATION
  Report Type: Report from Study
  Country: ES (occurrence: ES)
  Receive Date: 20190411
  Receipt Date: 20190411
  Transmission Date: 20190711
  Serious: Yes (Life-Threatening, Hospitalization)
  Sender: FDA-Public Use
  Company Number: ES-TEVA-2019-ES-1035095

PATIENT
  Age: 79 Year
  Sex: Male

DRUGS (3)
  1. VESICARE 5 MG COMPRIMIDOS RECUBIERTOS CON PELICULA , 30 COMPRIMIDOS [Concomitant]
     Indication: URINARY INCONTINENCE
     Dosage: 5 MILLIGRAM DAILY;
     Route: 048
     Dates: start: 201310
  2. RISPERIDONA (7201A) [Suspect]
     Active Substance: RISPERIDONE
     Indication: VASCULAR DEMENTIA
     Dosage: 1 MILLIGRAM DAILY;
     Route: 048
     Dates: start: 200607
  3. CLOPIDOGREL [Interacting]
     Active Substance: CLOPIDOGREL BISULFATE
     Indication: THROMBOSIS PROPHYLAXIS
     Dosage: 75 MILLIGRAM DAILY;
     Route: 048
     Dates: start: 200607, end: 20181201

REACTIONS (2)
  - Haemorrhage intracranial [Recovered/Resolved]
  - Drug interaction [Unknown]

NARRATIVE: CASE EVENT DATE: 20181202
